FAERS Safety Report 22000159 (Version 1)
Quarter: 2023Q1

REPORT INFORMATION
  Report Type: Spontaneous
  Country: CA (occurrence: CA)
  Receive Date: 20230216
  Receipt Date: 20230216
  Transmission Date: 20230418
  Serious: Yes (Hospitalization)
  Sender: FDA-Public Use
  Company Number: CA-PFIZER INC-202300066854

PATIENT
  Age: 88 Year
  Sex: Female

DRUGS (1)
  1. FLUCONAZOLE [Suspect]
     Active Substance: FLUCONAZOLE
     Indication: Oral candidiasis
     Dosage: SINGLE
     Route: 048

REACTIONS (4)
  - Adrenal insufficiency [Unknown]
  - Asthenia [Unknown]
  - Hyponatraemia [Unknown]
  - Off label use [Unknown]
